FAERS Safety Report 24747401 (Version 1)
Quarter: 2024Q4

REPORT INFORMATION
  Report Type: Spontaneous
  Country: US (occurrence: US)
  Receive Date: 20241218
  Receipt Date: 20241218
  Transmission Date: 20250115
  Serious: Yes (Other)
  Sender: STRIDES
  Company Number: US-STRIDES ARCOLAB LIMITED-2024SP014470

PATIENT
  Age: 73 Year
  Sex: Male

DRUGS (33)
  1. PREDNISOLONE [Suspect]
     Active Substance: PREDNISOLONE
     Indication: Dermatitis bullous
     Dosage: UNK
     Route: 065
  2. HYDROXYZINE HYDROCHLORIDE [Suspect]
     Active Substance: HYDROXYZINE HYDROCHLORIDE
     Indication: Paraneoplastic syndrome
     Dosage: UNK
     Route: 065
  3. HYDROXYZINE HYDROCHLORIDE [Suspect]
     Active Substance: HYDROXYZINE HYDROCHLORIDE
     Indication: Pemphigoid
  4. HYDROXYZINE HYDROCHLORIDE [Suspect]
     Active Substance: HYDROXYZINE HYDROCHLORIDE
     Indication: Monoclonal B-cell lymphocytosis
  5. MYCOPHENOLATE MOFETIL [Suspect]
     Active Substance: MYCOPHENOLATE MOFETIL
     Indication: Paraneoplastic syndrome
     Dosage: UNK
     Route: 065
  6. MYCOPHENOLATE MOFETIL [Suspect]
     Active Substance: MYCOPHENOLATE MOFETIL
     Indication: Pemphigoid
  7. MYCOPHENOLATE MOFETIL [Suspect]
     Active Substance: MYCOPHENOLATE MOFETIL
     Indication: Monoclonal B-cell lymphocytosis
  8. AZATHIOPRINE [Suspect]
     Active Substance: AZATHIOPRINE
     Indication: Paraneoplastic syndrome
     Dosage: UNK
     Route: 065
  9. AZATHIOPRINE [Suspect]
     Active Substance: AZATHIOPRINE
     Indication: Pemphigoid
  10. AZATHIOPRINE [Suspect]
     Active Substance: AZATHIOPRINE
     Indication: Monoclonal B-cell lymphocytosis
  11. METHOTREXATE [Suspect]
     Active Substance: METHOTREXATE
     Indication: Paraneoplastic syndrome
     Dosage: UNK
     Route: 065
  12. METHOTREXATE [Suspect]
     Active Substance: METHOTREXATE
     Indication: Pemphigoid
  13. METHOTREXATE [Suspect]
     Active Substance: METHOTREXATE
     Indication: Monoclonal B-cell lymphocytosis
  14. NIACINAMIDE [Suspect]
     Active Substance: NIACINAMIDE
     Indication: Dermatitis bullous
     Dosage: UNK
     Route: 065
  15. CLOBETASOL [Suspect]
     Active Substance: CLOBETASOL
     Indication: Pemphigoid
     Dosage: UNK
     Route: 065
  16. CLOBETASOL [Suspect]
     Active Substance: CLOBETASOL
     Indication: Monoclonal B-cell lymphocytosis
  17. CLOBETASOL [Suspect]
     Active Substance: CLOBETASOL
     Indication: Paraneoplastic syndrome
  18. RITUXIMAB [Suspect]
     Active Substance: RITUXIMAB
     Indication: Paraneoplastic syndrome
     Dosage: UNK
     Route: 065
  19. RITUXIMAB [Suspect]
     Active Substance: RITUXIMAB
     Indication: Pemphigoid
  20. RITUXIMAB [Suspect]
     Active Substance: RITUXIMAB
     Indication: Monoclonal B-cell lymphocytosis
  21. DUPILUMAB [Suspect]
     Active Substance: DUPILUMAB
     Indication: Paraneoplastic syndrome
     Dosage: UNK
     Route: 065
  22. DUPILUMAB [Suspect]
     Active Substance: DUPILUMAB
     Indication: Pemphigoid
  23. DUPILUMAB [Suspect]
     Active Substance: DUPILUMAB
     Indication: Monoclonal B-cell lymphocytosis
  24. IMMUNE GLOBULIN NOS [Suspect]
     Active Substance: IMMUNE GLOBULIN NOS
     Indication: Paraneoplastic syndrome
     Dosage: UNK
     Route: 042
  25. IMMUNE GLOBULIN NOS [Suspect]
     Active Substance: IMMUNE GLOBULIN NOS
     Indication: Pemphigoid
  26. IMMUNE GLOBULIN NOS [Suspect]
     Active Substance: IMMUNE GLOBULIN NOS
     Indication: Monoclonal B-cell lymphocytosis
  27. DAPSONE [Suspect]
     Active Substance: DAPSONE
     Indication: Paraneoplastic syndrome
     Dosage: UNK
     Route: 065
  28. DAPSONE [Suspect]
     Active Substance: DAPSONE
     Indication: Pemphigoid
  29. DAPSONE [Suspect]
     Active Substance: DAPSONE
     Indication: Monoclonal B-cell lymphocytosis
  30. UPADACITINIB [Suspect]
     Active Substance: UPADACITINIB
     Indication: Paraneoplastic syndrome
     Dosage: UNK
     Route: 065
  31. UPADACITINIB [Suspect]
     Active Substance: UPADACITINIB
     Indication: Pemphigoid
  32. UPADACITINIB [Suspect]
     Active Substance: UPADACITINIB
     Indication: Monoclonal B-cell lymphocytosis
  33. DOXYCYCLINE [Concomitant]
     Active Substance: DOXYCYCLINE
     Indication: Evidence based treatment
     Dosage: UNK
     Route: 065

REACTIONS (3)
  - Treatment failure [Unknown]
  - Therapy partial responder [Unknown]
  - Off label use [Unknown]
